FAERS Safety Report 8172813-4 (Version None)
Quarter: 2012Q1

REPORT INFORMATION
  Report Type: 
  Country: None (occurrence: None)
  Receive Date: 20120223
  Receipt Date: 20120213
  Transmission Date: 20120608
  Serious: Yes (Hospitalization, Other)
  Sender: FDA-Public Use
  Company Number: AUR-APL-2012-01008

PATIENT
  Age: 62 Year
  Sex: Female
  Weight: 61 kg

DRUGS (4)
  1. CODEINE SULFATE [Suspect]
     Indication: PAIN
     Dosage: UNKNOWN
  2. VENLAFAXINE [Suspect]
     Indication: DEPRESSION
     Dosage: UNKNOWN
     Dates: start: 20110101, end: 20110101
  3. EFFEXOR XR [Suspect]
     Indication: DEPRESSION
     Dosage: 150 MG (150 MG, 1 IN 1 D), UNKNOWN
  4. ALPRAZOLAM [Suspect]
     Indication: PANIC ATTACK
     Dosage: 8 MG (2 MG, 4 IN 1 D), UNKNOWN

REACTIONS (8)
  - ANGER [None]
  - HEADACHE [None]
  - MENTAL DISORDER [None]
  - BRONCHITIS [None]
  - DEPRESSION [None]
  - PYREXIA [None]
  - HYPERHIDROSIS [None]
  - PRODUCT SUBSTITUTION ISSUE [None]
